FAERS Safety Report 19075915 (Version 2)
Quarter: 2021Q3

REPORT INFORMATION
  Report Type: Spontaneous
  Country: US (occurrence: US)
  Receive Date: 20210330
  Receipt Date: 20210916
  Transmission Date: 20211014
  Serious: Yes (Other)
  Sender: FDA-Public Use
  Company Number: US-GILEAD-2021-0523083

PATIENT
  Age: 47 Year
  Sex: Male
  Weight: 153.29 kg

DRUGS (17)
  1. ABACAVIR. [Concomitant]
     Active Substance: ABACAVIR
  2. NORVIR [Concomitant]
     Active Substance: RITONAVIR
  3. AZITHROMYCIN ANHYDROUS. [Concomitant]
     Active Substance: AZITHROMYCIN ANHYDROUS
  4. ERGOCALCIFEROL. [Concomitant]
     Active Substance: ERGOCALCIFEROL
  5. VIREAD [Suspect]
     Active Substance: TENOFOVIR DISOPROXIL FUMARATE
     Dosage: UNK
     Route: 048
     Dates: start: 20140121, end: 201407
  6. REYATAZ [Concomitant]
     Active Substance: ATAZANAVIR SULFATE
  7. ATAZANAVIR. [Concomitant]
     Active Substance: ATAZANAVIR
  8. LISINOPRIL. [Concomitant]
     Active Substance: LISINOPRIL
  9. TRIUMEQ [Concomitant]
     Active Substance: ABACAVIR SULFATE\DOLUTEGRAVIR SODIUM\LAMIVUDINE
  10. VIREAD [Suspect]
     Active Substance: TENOFOVIR DISOPROXIL FUMARATE
     Dosage: UNK
     Route: 048
     Dates: start: 20140721, end: 201506
  11. AMLODIPINE [Concomitant]
     Active Substance: AMLODIPINE BESYLATE
  12. ZIAGEN [Concomitant]
     Active Substance: ABACAVIR SULFATE
  13. TENOFOVIR ALAFENAMIDE [Concomitant]
     Active Substance: TENOFOVIR ALAFENAMIDE
  14. VIREAD [Suspect]
     Active Substance: TENOFOVIR DISOPROXIL FUMARATE
     Dosage: UNK
     Route: 048
     Dates: start: 20150622, end: 2018
  15. VIREAD [Suspect]
     Active Substance: TENOFOVIR DISOPROXIL FUMARATE
     Indication: HIV INFECTION
     Dosage: UNK
     Route: 048
     Dates: start: 20080522, end: 201401
  16. ATOVAQUONE/PROGUANIL [Concomitant]
     Active Substance: ATOVAQUONE\PROGUANIL
  17. RITONAVIR. [Concomitant]
     Active Substance: RITONAVIR

REACTIONS (8)
  - Adverse drug reaction [Unknown]
  - Anhedonia [Not Recovered/Not Resolved]
  - Emotional distress [Not Recovered/Not Resolved]
  - Hypertension [Unknown]
  - Chronic kidney disease [Not Recovered/Not Resolved]
  - Anxiety [Not Recovered/Not Resolved]
  - Pain [Not Recovered/Not Resolved]
  - Physical deconditioning [Not Recovered/Not Resolved]

NARRATIVE: CASE EVENT DATE: 20180616
